FAERS Safety Report 8272110-2 (Version None)
Quarter: 2012Q2

REPORT INFORMATION
  Report Type: 
  Country: None (occurrence: None)
  Receive Date: 20120410
  Receipt Date: 20120403
  Transmission Date: 20120825
  Serious: Yes (Hospitalization, Other)
  Sender: FDA-Public Use
  Company Number: PHHY2011US65501

PATIENT
  Sex: Male
  Weight: 154 kg

DRUGS (14)
  1. ZOFRAN [Concomitant]
  2. OXYCONTIN [Concomitant]
     Dosage: UNK UKN, UNK
  3. BACLOFEN [Concomitant]
     Dosage: UNK UKN, UNK
  4. MORPHINE [Concomitant]
     Dosage: UNK UKN, UNK
  5. ACIDOPHILUS [Concomitant]
  6. ZANAFLEX [Concomitant]
  7. VITAMIN D [Concomitant]
  8. OXYCODONE HCL [Concomitant]
     Dosage: UNK UKN, UNK
  9. GABAPENTIN [Concomitant]
  10. PROTONIX [Concomitant]
     Dosage: UNK UKN, UNK
  11. IMIPRAMINE [Concomitant]
     Dosage: UNK UKN, UNK
  12. MS CONTIN [Concomitant]
  13. EXTAVIA [Suspect]
     Indication: MULTIPLE SCLEROSIS
     Dosage: 250 UG, QOD
     Route: 058
     Dates: start: 20110706, end: 20120201
  14. VANCOMYCIN [Concomitant]
     Dosage: UNK UKN, UNK

REACTIONS (10)
  - GASTROINTESTINAL DISORDER [None]
  - ABDOMINAL PAIN [None]
  - MUSCLE SPASMS [None]
  - MULTIPLE SCLEROSIS [None]
  - OEDEMA PERIPHERAL [None]
  - CLOSTRIDIAL INFECTION [None]
  - ABDOMINAL DISTENSION [None]
  - URINARY INCONTINENCE [None]
  - JOINT LOCK [None]
  - AGITATION [None]
